FAERS Safety Report 16223696 (Version 2)
Quarter: 2019Q2

REPORT INFORMATION
  Report Type: Spontaneous
  Country: JP (occurrence: JP)
  Receive Date: 20190422
  Receipt Date: 20190520
  Transmission Date: 20190711
  Serious: Yes (Hospitalization)
  Sender: FDA-Public Use
  Company Number: JP-BAYER-2018-238434

PATIENT
  Age: 72 Year
  Sex: Male
  Weight: 69 kg

DRUGS (7)
  1. STIVARGA [Suspect]
     Active Substance: REGORAFENIB
     Indication: HEPATOCELLULAR CARCINOMA
     Dosage: DAILY DOSE 120 MG
     Route: 048
     Dates: start: 20180326, end: 20190122
  2. RIFXIMA [Concomitant]
     Active Substance: RIFAXIMIN
     Dosage: DAILY DOSE 120 MG
     Route: 048
     Dates: start: 20180326
  3. PIARLE [Concomitant]
     Dosage: DAILY DOSE 40 ML
     Route: 048
     Dates: start: 20180326
  4. LOPERAMIDE [Concomitant]
     Active Substance: LOPERAMIDE
     Dosage: DAILY DOSE 2 MG
     Route: 048
     Dates: start: 20180326
  5. STIVARGA [Suspect]
     Active Substance: REGORAFENIB
     Indication: HEPATOCELLULAR CARCINOMA
     Dosage: DAILY DOSE 80 MG
     Route: 048
     Dates: start: 20190123
  6. ESOMEPRAZOLE. [Concomitant]
     Active Substance: ESOMEPRAZOLE MAGNESIUM
     Dosage: DAILY DOSE 20 MG
     Route: 048
     Dates: start: 20180326
  7. LIXIANA [Concomitant]
     Active Substance: EDOXABAN TOSYLATE
     Dosage: DAILY DOSE 60 MG
     Route: 048
     Dates: start: 20180326

REACTIONS (3)
  - Abdominal pain [Recovered/Resolved]
  - Duodenal perforation [Recovered/Resolved]
  - Peritonitis [Recovered/Resolved]

NARRATIVE: CASE EVENT DATE: 20181203
